FAERS Safety Report 5075513-2 (Version None)
Quarter: 2006Q3

REPORT INFORMATION
  Report Type: 
  Country: None (occurrence: None)
  Receive Date: 20060809
  Receipt Date: 20060719
  Transmission Date: 20061208
  Serious: Yes (Other)
  Sender: FDA-Public Use
  Company Number: PHBS2006JP10866

PATIENT
  Age: 55 Year
  Sex: Male

DRUGS (12)
  1. DICLOFENAC SODIUM [Suspect]
     Indication: HEADACHE
     Dosage: 50 TO 100 MG/DAY
     Route: 054
     Dates: end: 20040101
  2. LOXOPROFEN SODIUM [Suspect]
     Indication: HEADACHE
     Dosage: 60 MG, TID
     Route: 048
     Dates: end: 20040101
  3. CODEINE PHOSPHATE [Suspect]
     Indication: HEADACHE
     Dosage: 120 MG, QID
     Route: 048
     Dates: start: 20040101, end: 20040101
  4. SULPIRIDE [Concomitant]
     Indication: HEADACHE
     Dosage: 150 MG/DAY
     Route: 048
     Dates: start: 20040101, end: 20040101
  5. GOSHUYU-TO [Concomitant]
     Indication: HEADACHE
     Dosage: 7.5 MG, TID
     Route: 048
     Dates: start: 20040101, end: 20040101
  6. SUMATRIPTAN SUCCINATE [Concomitant]
     Indication: HEADACHE
     Route: 058
     Dates: start: 20040101, end: 20040101
  7. SUMATRIPTAN SUCCINATE [Concomitant]
     Indication: HEADACHE
     Dates: start: 20040101, end: 20040101
  8. ACETAMINOPHEN [Concomitant]
     Indication: HEADACHE
     Dosage: 1.5 G, TID
     Route: 048
     Dates: start: 20040101, end: 20040101
  9. CHOUTOUSAN [Concomitant]
     Indication: HEADACHE
     Dosage: 7.5 G, TID
     Route: 048
     Dates: start: 20040101, end: 20040101
  10. PROCHLORPERAZINE TAB [Concomitant]
     Indication: NAUSEA
     Dosage: 5 MG, TID
     Route: 048
     Dates: start: 20040101, end: 20040101
  11. PURSENNID [Concomitant]
     Indication: CONSTIPATION
     Dosage: 12 MG/DAY
     Route: 048
     Dates: start: 20040101, end: 20040101
  12. DIHYDROERGOTAMINE MESYLATE [Concomitant]
     Dosage: 1 MG, TID

REACTIONS (4)
  - DRUG ABUSER [None]
  - HEADACHE [None]
  - NAUSEA [None]
  - VOMITING [None]
